FAERS Safety Report 25935369 (Version 1)
Quarter: 2025Q4

REPORT INFORMATION
  Report Type: Spontaneous
  Country: US (occurrence: None)
  Receive Date: 20251017
  Receipt Date: 20251017
  Transmission Date: 20260117
  Serious: Yes (Disabling, Other)
  Sender: FDA-CTU
  Company Number: None

PATIENT
  Age: 40 Year
  Sex: Female
  Weight: 90 kg

DRUGS (27)
  1. PROZAC [Suspect]
     Active Substance: FLUOXETINE HYDROCHLORIDE
     Indication: Depression
     Dosage: OTHER QUANTITY : 60 TABLET(S);?FREQUENCY : TWICE A DAY;?
     Route: 048
     Dates: start: 19980902, end: 19981104
  2. RISPERDAL [Suspect]
     Active Substance: RISPERIDONE
     Indication: Anxiety disorder
     Dosage: FREQUENCY : TWICE A DAY;?
     Route: 048
     Dates: start: 19981001, end: 20141015
  3. AUVELITY [Suspect]
     Active Substance: BUPROPION HYDROCHLORIDE\DEXTROMETHORPHAN HYDROBROMIDE
  4. BUSPAR [Suspect]
     Active Substance: BUSPIRONE HYDROCHLORIDE
     Indication: Anxiety disorder
     Route: 048
     Dates: start: 19981001, end: 20141015
  5. LAMICTAL [Concomitant]
     Active Substance: LAMOTRIGINE
  6. CELEXA [Concomitant]
     Active Substance: CITALOPRAM HYDROBROMIDE
  7. ZOLOFT [Concomitant]
     Active Substance: SERTRALINE HYDROCHLORIDE
  8. PROZAC [Concomitant]
     Active Substance: FLUOXETINE HYDROCHLORIDE
  9. EFFEXOR [Concomitant]
     Active Substance: VENLAFAXINE HYDROCHLORIDE
  10. WELLBUTRIN [Concomitant]
     Active Substance: BUPROPION HYDROCHLORIDE
  11. PAXIL [Concomitant]
     Active Substance: PAROXETINE HYDROCHLORIDE
  12. GEODON [Concomitant]
     Active Substance: ZIPRASIDONE HYDROCHLORIDE\ZIPRASIDONE MESYLATE
  13. TRAZODONE [Concomitant]
     Active Substance: TRAZODONE HYDROCHLORIDE
  14. SEROQUEL [Concomitant]
     Active Substance: QUETIAPINE FUMARATE
  15. ABILIFY [Concomitant]
     Active Substance: ARIPIPRAZOLE
  16. LATUDA [Concomitant]
     Active Substance: LURASIDONE HYDROCHLORIDE
  17. VRAYLAR [Concomitant]
     Active Substance: CARIPRAZINE
  18. RISPERDAL [Concomitant]
     Active Substance: RISPERIDONE
  19. PRISTIQ EXTENDED-RELEASE [Concomitant]
     Active Substance: DESVENLAFAXINE SUCCINATE
  20. PROVIGIL [Concomitant]
     Active Substance: MODAFINIL
  21. vit- c-k-d3 magn [Concomitant]
  22. esium [Concomitant]
  23. HERBALS\TURMERIC [Concomitant]
     Active Substance: HERBALS\TURMERIC
  24. OMEGA 3 [Concomitant]
     Active Substance: CAPSAICIN
  25. mushroom supplement [Concomitant]
  26. BIOTIN [Concomitant]
     Active Substance: BIOTIN
  27. CALCIUM [Concomitant]
     Active Substance: CALCIUM

REACTIONS (6)
  - Anorgasmia [None]
  - Glucose tolerance impaired [None]
  - Obesity [None]
  - Galactorrhoea [None]
  - Metabolic disorder [None]
  - Loss of libido [None]

NARRATIVE: CASE EVENT DATE: 20050201
